FAERS Safety Report 4424962-1 (Version None)
Quarter: 2004Q3

REPORT INFORMATION
  Report Type: 
  Country: None (occurrence: None)
  Receive Date: 20040811
  Receipt Date: 20040811
  Transmission Date: 20050211
  Serious: No
  Sender: FDA-Public Use
  Company Number: None

PATIENT
  Age: 68 Year
  Sex: Female
  Weight: 65.318 kg

DRUGS (1)
  1. LYMPHOCYTES [Suspect]

REACTIONS (3)
  - INDIRECT INFECTION TRANSMISSION [None]
  - INFUSION SITE INFECTION [None]
  - STAPHYLOCOCCAL INFECTION [None]
